FAERS Safety Report 20141112 (Version 1)
Quarter: 2021Q4

REPORT INFORMATION
  Report Type: Report from Study
  Country: US (occurrence: US)
  Receive Date: 20211202
  Receipt Date: 20211202
  Transmission Date: 20220303
  Serious: Yes (Hospitalization, Other)
  Sender: FDA-Public Use
  Company Number: US-GW PHARMA-202111USGW05866

PATIENT

DRUGS (1)
  1. EPIDIOLEX [Suspect]
     Active Substance: CANNABIDIOL
     Indication: Product used for unknown indication
     Dosage: 500 MILLIGRAM, BID
     Route: 048
     Dates: start: 20210422

REACTIONS (3)
  - Hemiplegia [Unknown]
  - Brain operation [Recovered/Resolved with Sequelae]
  - Brain operation [Recovered/Resolved with Sequelae]

NARRATIVE: CASE EVENT DATE: 20211101
